FAERS Safety Report 5007240-1 (Version None)
Quarter: 2006Q1

REPORT INFORMATION
  Report Type: 
  Country: None (occurrence: None)
  Receive Date: 20060320
  Receipt Date: 20050307
  Transmission Date: 20060701
  Serious: Yes (Other)
  Sender: FDA-Public Use
  Company Number: 2005-03-0842

PATIENT
  Age: 43 Year
  Sex: Male
  Weight: 92.9874 kg

DRUGS (2)
  1. PEG-INTRON [Suspect]
     Dates: start: 20010301, end: 20010901
  2. REBETOL [Suspect]
     Dates: start: 20010301, end: 20010901

REACTIONS (10)
  - AMNESIA [None]
  - ANOREXIA [None]
  - ANXIETY [None]
  - ARTHRALGIA [None]
  - ASTHMA [None]
  - DEPRESSION [None]
  - DIARRHOEA [None]
  - INSOMNIA [None]
  - PYREXIA [None]
  - SUICIDAL IDEATION [None]
